FAERS Safety Report 19533225 (Version 1)
Quarter: 2021Q3

REPORT INFORMATION
  Report Type: Other
  Country: JP (occurrence: JP)
  Receive Date: 20210713
  Receipt Date: 20210713
  Transmission Date: 20211014
  Serious: Yes (Other)
  Sender: FDA-Public Use
  Company Number: JP-ROCHE-2868595

PATIENT

DRUGS (1)
  1. RITUXIMAB. [Suspect]
     Active Substance: RITUXIMAB
     Indication: SYSTEMIC SCLERODERMA
     Dosage: THE 4?WEEK TREATMENT PERIOD (FOUR 375 MG/M2 DOSES AT 1?WEEK INTERVALS) AND SUBSEQUENT 20?WEEK FOLLOW
     Route: 041

REACTIONS (1)
  - Enterocolitis [Unknown]
